FAERS Safety Report 8560378-4 (Version None)
Quarter: 2012Q3

REPORT INFORMATION
  Report Type: 
  Country: None (occurrence: None)
  Receive Date: 20120727
  Receipt Date: 20120727
  Transmission Date: 20120928
  Serious: Yes (Hospitalization)
  Sender: FDA-Public Use
  Company Number: None

PATIENT
  Age: 73 Year
  Sex: Male
  Weight: 72.1 kg

DRUGS (13)
  1. RANEXA [Concomitant]
  2. LANTUS [Concomitant]
  3. WARFARIN SODIUM [Suspect]
     Indication: CORONARY ARTERIAL STENT INSERTION
     Dosage: 2 MG DAILY PO CHRONIC RECENT
     Route: 048
  4. WARFARIN SODIUM [Suspect]
     Indication: OSTEOARTHRITIS
     Dosage: 2 MG DAILY PO CHRONIC RECENT
     Route: 048
  5. MOBIC [Suspect]
  6. LEVOTHYROXINE SODIUM [Concomitant]
  7. LASIX [Concomitant]
  8. NAPROXEN (ALEVE) [Suspect]
     Indication: OSTEOARTHRITIS
     Dosage: ? PRN PO CHRONIC
     Route: 048
  9. PANCRELIPASE [Concomitant]
  10. CITALOPRAM HYDROBROMIDE [Concomitant]
  11. GEMFIBROZIL [Concomitant]
  12. ATENOLOL [Concomitant]
  13. VICTOZA [Concomitant]

REACTIONS (5)
  - INTERNATIONAL NORMALISED RATIO INCREASED [None]
  - ANAEMIA [None]
  - DUODENAL ULCER [None]
  - OESOPHAGEAL ACHALASIA [None]
  - UPPER GASTROINTESTINAL HAEMORRHAGE [None]
